FAERS Safety Report 4960502-6 (Version None)
Quarter: 2006Q1

REPORT INFORMATION
  Report Type: 
  Country: None (occurrence: None)
  Receive Date: 20060328
  Receipt Date: 20060315
  Transmission Date: 20060701
  Serious: Yes (Life-Threatening)
  Sender: FDA-Public Use
  Company Number: 109520ISR

PATIENT
  Age: 82 Year
  Sex: Female

DRUGS (1)
  1. TICLOPIDINE HCL [Suspect]
     Indication: CORONARY ARTERY DISEASE
     Dosage: 500 MILLIGRAM ORAL
     Route: 048
     Dates: start: 20050428, end: 20050520

REACTIONS (1)
  - ASTHMATIC CRISIS [None]
